FAERS Safety Report 5469838-6 (Version None)
Quarter: 2007Q3

REPORT INFORMATION
  Report Type: 
  Country: None (occurrence: None)
  Receive Date: 20070927
  Receipt Date: 20070806
  Transmission Date: 20080115
  Serious: No
  Sender: FDA-Public Use
  Company Number: US-BRISTOL-MYERS SQUIBB COMPANY-13868963

PATIENT
  Age: 31 Year
  Sex: Male
  Weight: 86 kg

DRUGS (2)
  1. SPRYCEL [Suspect]
     Indication: LEUKAEMIA
  2. ATENOLOL [Concomitant]

REACTIONS (1)
  - LIP DRY [None]
